FAERS Safety Report 19855737 (Version 2)
Quarter: 2021Q4

REPORT INFORMATION
  Report Type: Spontaneous
  Country: US (occurrence: US)
  Receive Date: 20210920
  Receipt Date: 20211026
  Transmission Date: 20220303
  Serious: Yes (Hospitalization)
  Sender: FDA-Public Use
  Company Number: US-BRAINTREE LABORATORIES, INC.-2021BTE00744

PATIENT
  Age: 53 Year
  Sex: Female
  Weight: 83.5 kg

DRUGS (6)
  1. SUTAB [Suspect]
     Active Substance: MAGNESIUM SULFATE\POTASSIUM CHLORIDE\SODIUM SULFATE
     Indication: Colonoscopy
     Dosage: 2 X 12 TABLETS, 1X
     Route: 048
     Dates: start: 20210822, end: 20210822
  2. ZYRTEC [Concomitant]
     Active Substance: CETIRIZINE HYDROCHLORIDE
     Dosage: 10 MG, 1X/DAY
     Route: 048
     Dates: end: 20210821
  3. CYANOCOBALAMIN, VITAMIN B12 [Concomitant]
     Dosage: 500 ?G, 1X/DAY EVERY MORNING
     Route: 048
     Dates: end: 20210814
  4. MULTIVIT-MIN-8 MG IRON-400  MCG FA-300 MCG LUTEIN [Concomitant]
     Dosage: 1 TABLETS, 1X/DAY EVERY MORNING
     Route: 048
     Dates: end: 20210821
  5. CHOLECALCIFEROL, VITAMIN D3 [Concomitant]
     Dosage: 1 TABLETS, 1X/DAY EVERY MORNING
     Route: 048
     Dates: end: 20210821
  6. ACETAMINOPHEN [Concomitant]
     Active Substance: ACETAMINOPHEN
     Dosage: UNK
     Dates: end: 20210821

REACTIONS (6)
  - Atrial fibrillation [Recovered/Resolved]
  - Myocardial ischaemia [Unknown]
  - Leukocytosis [Unknown]
  - Nausea [Recovered/Resolved]
  - Vomiting [Recovered/Resolved]
  - Wrong technique in product usage process [Recovered/Resolved]

NARRATIVE: CASE EVENT DATE: 20210822
